FAERS Safety Report 6369188-X (Version None)
Quarter: 2009Q3

REPORT INFORMATION
  Report Type: 
  Country: None (occurrence: None)
  Receive Date: 20090827
  Receipt Date: 20090813
  Transmission Date: 20100115
  Serious: Yes (Other)
  Sender: FDA-Public Use
  Company Number: THYM-1000996

PATIENT
  Age: 43 Year
  Sex: Female
  Weight: 50 kg

DRUGS (4)
  1. THYMOGLOBULIN [Suspect]
     Indication: STEM CELL TRANSPLANT
     Dosage: 125 MG, QD, INTRAVENOUS ; 2.5 MG, ONCE, INTRAVENOUS
     Route: 042
     Dates: start: 20090329
  2. THYMOGLOBULIN [Suspect]
     Indication: STEM CELL TRANSPLANT
     Dosage: 125 MG, QD, INTRAVENOUS ; 2.5 MG, ONCE, INTRAVENOUS
     Route: 042
     Dates: start: 20090329
  3. FLUDARABINE PHOSPHATE [Concomitant]
  4. CYCLOPHOSPHAMIDE [Concomitant]

REACTIONS (1)
  - CYTOKINE RELEASE SYNDROME [None]
